FAERS Safety Report 7963175-3 (Version None)
Quarter: 2011Q4

REPORT INFORMATION
  Report Type: 
  Country: None (occurrence: None)
  Receive Date: 20111208
  Receipt Date: 20111125
  Transmission Date: 20120403
  Serious: Yes (Hospitalization)
  Sender: FDA-Public Use
  Company Number: GB-AMGEN-GBRCT2011061185

PATIENT
  Age: 63 Year
  Sex: Female

DRUGS (7)
  1. EPIRUBICIN [Concomitant]
     Dosage: 174 MG, Q3WK
     Route: 042
     Dates: start: 20110905
  2. DENOSUMAB [Suspect]
     Indication: BREAST CANCER
     Dosage: 120 MG, UNK
     Route: 058
     Dates: start: 20110905
  3. SIMVASTATIN [Concomitant]
     Dosage: 40 MG, QD
     Route: 048
     Dates: start: 20111123
  4. ACETAMINOPHEN AND CODEINE PHOSPHATE [Concomitant]
     Dosage: 30 MG, QD
     Route: 048
  5. FLUOROURACIL [Concomitant]
     Dosage: 875 MG, Q3WK
     Route: 042
     Dates: start: 20110905
  6. CYCLOPHOSPHAMIDE [Concomitant]
     Dosage: 880 MG, Q3WK
     Route: 042
     Dates: start: 20110905
  7. APREPITANT [Concomitant]
     Dosage: 125 MG, QD
     Route: 048

REACTIONS (1)
  - NEUTROPENIC SEPSIS [None]
